FAERS Safety Report 6726734-1 (Version None)
Quarter: 2010Q2

REPORT INFORMATION
  Report Type: 
  Country: None (occurrence: None)
  Receive Date: 20100514
  Receipt Date: 20100507
  Transmission Date: 20101027
  Serious: Yes (Hospitalization, Other)
  Sender: FDA-Public Use
  Company Number: US-AMGEN-QUU411061

PATIENT
  Sex: Male
  Weight: 91.3 kg

DRUGS (1)
  1. NPLATE [Suspect]
     Indication: IDIOPATHIC THROMBOCYTOPENIC PURPURA
     Route: 058
     Dates: start: 20080925, end: 20100222

REACTIONS (12)
  - ENDOTRACHEAL INTUBATION [None]
  - EPISTAXIS [None]
  - FATIGUE [None]
  - GASTRIC VARICES [None]
  - GASTRIC VARICES HAEMORRHAGE [None]
  - HEPATIC CIRRHOSIS [None]
  - HEPATIC HAEMATOMA [None]
  - HEPATIC NEOPLASM MALIGNANT [None]
  - INCISION SITE PAIN [None]
  - LIVER TRANSPLANT [None]
  - SPLENIC ARTERY ANEURYSM [None]
  - SPLENOMEGALY [None]
